FAERS Safety Report 7035390-7 (Version None)
Quarter: 2010Q4

REPORT INFORMATION
  Report Type: 
  Country: None (occurrence: None)
  Receive Date: 20101008
  Receipt Date: 20101004
  Transmission Date: 20110411
  Serious: Yes (Hospitalization, Other)
  Sender: FDA-Public Use
  Company Number: DE-GENZYME-THYM-1001874

PATIENT
  Age: 58 Year
  Sex: Female

DRUGS (4)
  1. THYMOGLOBULIN [Suspect]
     Indication: PROPHYLAXIS AGAINST TRANSPLANT REJECTION
     Dosage: UNK
     Route: 042
     Dates: start: 20070101
  2. TACROLIMUS [Concomitant]
     Indication: IMMUNOSUPPRESSION
     Dosage: UNK
     Dates: start: 20070101
  3. CORTICOSTEROID NOS [Concomitant]
     Indication: IMMUNOSUPPRESSION
     Dosage: UNK
     Dates: start: 20070101
  4. MYCOPHENOLATE MOFETIL [Concomitant]
     Indication: IMMUNOSUPPRESSION
     Dosage: UNK
     Dates: start: 20070101

REACTIONS (4)
  - PNEUMONIA [None]
  - RENAL FAILURE ACUTE [None]
  - SEPSIS [None]
  - TRANSPLANT REJECTION [None]
